FAERS Safety Report 6288139-X (Version None)
Quarter: 2009Q3

REPORT INFORMATION
  Report Type: 
  Country: None (occurrence: None)
  Receive Date: 20090729
  Receipt Date: 20090203
  Transmission Date: 20100115
  Serious: No
  Sender: FDA-Public Use
  Company Number: A0760976A

PATIENT
  Age: 55 Year
  Sex: Female
  Weight: 65.9 kg

DRUGS (5)
  1. RANITIDINE [Suspect]
     Indication: SWELLING
     Dosage: 4TSP TWICE PER DAY
     Route: 048
     Dates: start: 20070101
  2. CHLOR-TRIMETON [Concomitant]
  3. PREDNISONE [Concomitant]
  4. ZYRTEC [Concomitant]
  5. ADVAIR HFA [Concomitant]

REACTIONS (5)
  - DRUG INEFFECTIVE [None]
  - ERYTHEMA [None]
  - PRODUCT QUALITY ISSUE [None]
  - RASH [None]
  - RASH ERYTHEMATOUS [None]
